FAERS Safety Report 10239457 (Version 1)
Quarter: 2014Q2

REPORT INFORMATION
  Report Type: Spontaneous
  Country: IT (occurrence: IT)
  Receive Date: 20140616
  Receipt Date: 20140616
  Transmission Date: 20141212
  Serious: Yes (Other)
  Sender: FDA-Public Use
  Company Number: IT-WATSON-2014-13444

PATIENT
  Sex: Female

DRUGS (2)
  1. HALOPERIDOL (UNKNOWN) [Suspect]
     Indication: PSYCHOTIC DISORDER
     Dosage: 150 MG, EVERY 28 DAYS
     Route: 030
  2. HALOPERIDOL (UNKNOWN) [Suspect]
     Dosage: 10 MG, TID
     Route: 048

REACTIONS (4)
  - Mood swings [Unknown]
  - Fatigue [Unknown]
  - Hypothermia [Unknown]
  - Malaise [Unknown]
